FAERS Safety Report 9799308 (Version 2)
Quarter: 2014Q1

REPORT INFORMATION
  Report Type: Spontaneous
  Country: US (occurrence: US)
  Receive Date: 20140106
  Receipt Date: 20140116
  Transmission Date: 20141002
  Serious: Yes (Death, Life-Threatening, Hospitalization, Disabling, Other)
  Sender: FDA-Public Use
  Company Number: US-MERCK-1401USA000669

PATIENT
  Sex: Male
  Weight: 113.38 kg

DRUGS (4)
  1. JANUVIA [Suspect]
     Indication: TYPE 2 DIABETES MELLITUS
     Dosage: 100 MG, QD
     Route: 048
     Dates: start: 20070929, end: 20080416
  2. JANUMET [Suspect]
     Indication: TYPE 2 DIABETES MELLITUS
     Dosage: 50 MG/1000 MG, BID
     Route: 048
     Dates: start: 20080416, end: 20100117
  3. ALTACE [Concomitant]
     Indication: TYPE 2 DIABETES MELLITUS
     Dosage: 1 DF, BID
  4. ACTOPLUS MET [Concomitant]
     Indication: TYPE 2 DIABETES MELLITUS
     Dosage: 15/850, BID
     Dates: end: 20080416

REACTIONS (32)
  - Urinary retention [Unknown]
  - Metastases to lung [Unknown]
  - Pyelonephritis [Unknown]
  - Hepatic lesion [Unknown]
  - Pancreatic carcinoma metastatic [Fatal]
  - Nausea [Recovered/Resolved]
  - Pancreatitis [Unknown]
  - Abdominal pain [Recovered/Resolved]
  - Back pain [Not Recovered/Not Resolved]
  - Cholecystectomy [Unknown]
  - Pancreatitis chronic [Unknown]
  - Bile duct stent insertion [Unknown]
  - Gastroenterostomy [Unknown]
  - Choledochoenterostomy [Unknown]
  - Pancreaticoduodenectomy [Unknown]
  - Erectile dysfunction [Unknown]
  - Weight loss poor [Unknown]
  - Gallbladder disorder [Unknown]
  - Blood glucose decreased [Recovered/Resolved]
  - Peroneal nerve palsy [Unknown]
  - Failure to thrive [Not Recovered/Not Resolved]
  - Impaired gastric emptying [Not Recovered/Not Resolved]
  - Pancreatic cyst [Unknown]
  - Diarrhoea [Unknown]
  - Type 2 diabetes mellitus [Unknown]
  - Intervertebral disc protrusion [Unknown]
  - Biliary dilatation [Unknown]
  - Anaemia [Unknown]
  - Pneumomediastinum [Recovering/Resolving]
  - Dysuria [Recovered/Resolved]
  - Hypotension [Unknown]
  - Dehydration [Unknown]
